FAERS Safety Report 4742437-7 (Version None)
Quarter: 2005Q3

REPORT INFORMATION
  Report Type: 
  Country: None (occurrence: None)
  Receive Date: 20050808
  Receipt Date: 20050728
  Transmission Date: 20060218
  Serious: Yes (Other)
  Sender: FDA-Public Use
  Company Number: 2005109368

PATIENT
  Age: 48 Year
  Sex: Female
  Weight: 56.6996 kg

DRUGS (5)
  1. CELEBREX [Suspect]
     Indication: MUSCULOSKELETAL DISCOMFORT
     Dosage: (200 MG, ONE TO TWO TIMES DAILY), ORAL
     Route: 048
     Dates: end: 20050627
  2. FOSAMAX [Concomitant]
  3. TYLENOL [Concomitant]
  4. CALCIUM (CALCIUM) [Concomitant]
  5. VITAMINS (VITAMINS) [Concomitant]

REACTIONS (4)
  - ABDOMINAL PAIN UPPER [None]
  - CYST [None]
  - RENAL CYST [None]
  - THYROID NEOPLASM [None]
